FAERS Safety Report 15367607 (Version 2)
Quarter: 2018Q4

REPORT INFORMATION
  Report Type: Spontaneous
  Country: JP (occurrence: JP)
  Receive Date: 20180910
  Receipt Date: 20181009
  Transmission Date: 20190204
  Serious: Yes (Life-Threatening, Other)
  Sender: FDA-Public Use
  Company Number: JP-009507513-1809JPN000531J

PATIENT
  Age: 81 Year
  Sex: Male

DRUGS (4)
  1. UNASYN [Concomitant]
     Active Substance: AMPICILLIN SODIUM\SULBACTAM SODIUM
     Dosage: UNK
     Route: 065
  2. VANCOMYCIN [Concomitant]
     Active Substance: VANCOMYCIN
     Dosage: UNK
     Route: 065
  3. KEYTRUDA [Suspect]
     Active Substance: PEMBROLIZUMAB
     Indication: MALIGNANT NEOPLASM OF RENAL PELVIS
     Dosage: 200 MG, Q3W
     Route: 041
     Dates: start: 20180726
  4. DALACIN [Concomitant]
     Active Substance: CLINDAMYCIN
     Dosage: UNK
     Route: 065

REACTIONS (4)
  - Muscle abscess [Unknown]
  - Heat illness [Unknown]
  - Sepsis [Not Recovered/Not Resolved]
  - Prostatitis [Unknown]

NARRATIVE: CASE EVENT DATE: 20180827
